FAERS Safety Report 22090111 (Version 2)
Quarter: 2023Q2

REPORT INFORMATION
  Report Type: Report from Study
  Country: US (occurrence: US)
  Receive Date: 20230313
  Receipt Date: 20230516
  Transmission Date: 20230721
  Serious: Yes (Other)
  Sender: FDA-Public Use
  Company Number: US-BIOGEN-2023BI01192725

PATIENT
  Sex: Female

DRUGS (2)
  1. TYSABRI [Suspect]
     Active Substance: NATALIZUMAB
     Indication: Multiple sclerosis
     Route: 050
     Dates: start: 20191218, end: 20200409
  2. TYSABRI [Suspect]
     Active Substance: NATALIZUMAB
     Route: 050
     Dates: start: 20201106

REACTIONS (12)
  - Paralysis [Not Recovered/Not Resolved]
  - Asthenia [Recovered/Resolved]
  - Skin disorder [Not Recovered/Not Resolved]
  - Photopsia [Not Recovered/Not Resolved]
  - Cough [Not Recovered/Not Resolved]
  - Mental disorder [Not Recovered/Not Resolved]
  - Neurological decompensation [Unknown]
  - Fear [Not Recovered/Not Resolved]
  - Skin discolouration [Not Recovered/Not Resolved]
  - Central nervous system lesion [Unknown]
  - Limb injury [Recovered/Resolved]
  - Tremor [Not Recovered/Not Resolved]
